FAERS Safety Report 12334529 (Version 2)
Quarter: 2016Q3

REPORT INFORMATION
  Report Type: Spontaneous
  Country: HR (occurrence: HR)
  Receive Date: 20160504
  Receipt Date: 20160714
  Transmission Date: 20161109
  Serious: Yes (Death, Life-Threatening, Hospitalization)
  Sender: FDA-Public Use
  Company Number: HR-PFIZER INC-2016239396

PATIENT
  Age: 35 Year
  Sex: Female

DRUGS (2)
  1. IMIPENEM [Suspect]
     Active Substance: IMIPENEM
     Dosage: 1.0 G, 3X/DAY
     Route: 042
  2. PIPERACILLIN/TAZOBACTAM [Suspect]
     Active Substance: PIPERACILLIN SODIUM\TAZOBACTAM SODIUM
     Indication: PERITONITIS
     Dosage: UNK
     Route: 065

REACTIONS (3)
  - Septic shock [Fatal]
  - Therapeutic response decreased [Fatal]
  - Clostridium difficile infection [Fatal]
